FAERS Safety Report 7824113-7 (Version None)
Quarter: 2011Q4

REPORT INFORMATION
  Report Type: 
  Country: None (occurrence: None)
  Receive Date: 20111019
  Receipt Date: 20111017
  Transmission Date: 20120403
  Serious: Yes (Death, Hospitalization, Other)
  Sender: FDA-Public Use
  Company Number: PHFR2011GB04883

PATIENT
  Sex: Female
  Weight: 101 kg

DRUGS (12)
  1. ACETAMINOPHEN AND CODEINE PHOSPHATE [Concomitant]
     Dosage: 2 DF, QID
  2. LANSOPRAZOLE [Concomitant]
     Dosage: 15 MG, QD
  3. LIOTHYRONINE SODIUM [Concomitant]
     Dosage: 20 UG, QD
  4. DIAZEPAM [Concomitant]
     Dosage: 25 MG
  5. CLOZARIL [Suspect]
     Dosage: 50 MG, QD
     Dates: start: 20100701, end: 20101110
  6. CLOZARIL [Suspect]
     Indication: PERSONALITY DISORDER
     Dosage: UNK UKN, UNK
     Dates: start: 20031025
  7. AMISULPRIDE [Suspect]
     Dosage: 900 MG, UNK
  8. SIMVASTATIN [Concomitant]
     Dosage: 40 MG, QD
  9. FLUOXETINE [Concomitant]
     Dosage: 60 MG, QD
  10. RAMIPRIL [Concomitant]
     Dosage: 10 MG, QD
  11. TOPIRAMATE [Concomitant]
     Dosage: 75 MG, UNK
  12. FUROSEMIDE [Concomitant]
     Dosage: 80 MG, QD

REACTIONS (21)
  - SEPSIS [None]
  - BRONCHOPNEUMONIA [None]
  - LUNG CONSOLIDATION [None]
  - PERIPHERAL VASCULAR DISORDER [None]
  - PLEURAL EFFUSION [None]
  - PULMONARY OEDEMA [None]
  - FIBROSIS [None]
  - CEREBRAL ARTERIOSCLEROSIS [None]
  - PANCREATITIS CHRONIC [None]
  - LEFT VENTRICULAR HYPERTROPHY [None]
  - MALAISE [None]
  - RENAL DISORDER [None]
  - RESPIRATORY TRACT INFECTION [None]
  - ASCITES [None]
  - SEDATION [None]
  - RESPIRATORY FAILURE [None]
  - ARTERIOSCLEROSIS CORONARY ARTERY [None]
  - DEPRESSED LEVEL OF CONSCIOUSNESS [None]
  - HYPERTENSION [None]
  - ABNORMAL BEHAVIOUR [None]
  - OEDEMA PERIPHERAL [None]
